FAERS Safety Report 5210374-X (Version None)
Quarter: 2007Q1

REPORT INFORMATION
  Report Type: 
  Country: None (occurrence: None)
  Receive Date: 20070117
  Receipt Date: 20070108
  Transmission Date: 20070707
  Serious: Yes (Disabling)
  Sender: FDA-Public Use
  Company Number: FR-BAYER-200610473BFR

PATIENT
  Age: 31 Year
  Sex: Female
  Weight: 43 kg

DRUGS (1)
  1. CIPROFLOXACIN [Suspect]
     Indication: PYELONEPHRITIS
     Dosage: TOTAL DAILY DOSE: 1000 MG  UNIT DOSE: 500 MG
     Route: 048
     Dates: start: 20060419, end: 20060506

REACTIONS (7)
  - GAIT DISTURBANCE [None]
  - INFLAMMATION [None]
  - LOCALISED OEDEMA [None]
  - MYALGIA [None]
  - PAIN IN EXTREMITY [None]
  - PLANTAR FASCIITIS [None]
  - TENDONITIS [None]
